FAERS Safety Report 18521761 (Version 1)
Quarter: 2020Q4

REPORT INFORMATION
  Report Type: Spontaneous
  Country: US (occurrence: US)
  Receive Date: 20201118
  Receipt Date: 20201118
  Transmission Date: 20210114
  Serious: No
  Sender: FDA-Public Use
  Company Number: None

PATIENT
  Age: 66 Year
  Sex: Female

DRUGS (8)
  1. POMALYST [Concomitant]
     Active Substance: POMALIDOMIDE
  2. CALCIUM + D [Suspect]
     Active Substance: CALCIUM\VITAMIN D
  3. MULTIVITAMIN [Concomitant]
     Active Substance: VITAMINS
  4. TYLENOL [Concomitant]
     Active Substance: ACETAMINOPHEN
  5. MELATONIN [Concomitant]
     Active Substance: MELATONIN
  6. NINLARO [Suspect]
     Active Substance: IXAZOMIB CITRATE
     Indication: PLASMA CELL MYELOMA
     Route: 048
     Dates: start: 20190705, end: 20201026
  7. ACYCLOVIR. [Concomitant]
     Active Substance: ACYCLOVIR
  8. ZOMETA [Concomitant]
     Active Substance: ZOLEDRONIC ACID

REACTIONS (1)
  - Plasma cell myeloma recurrent [None]

NARRATIVE: CASE EVENT DATE: 20201109
